FAERS Safety Report 5453741-1 (Version None)
Quarter: 2007Q3

REPORT INFORMATION
  Report Type: 
  Country: None (occurrence: None)
  Receive Date: 20070917
  Receipt Date: 20070903
  Transmission Date: 20080115
  Serious: Yes (Hospitalization, Other)
  Sender: FDA-Public Use
  Company Number: DE-ELI_LILLY_AND_COMPANY-DE200708003861

PATIENT
  Age: 67 Year
  Sex: Male
  Weight: 63.8 kg

DRUGS (6)
  1. PEMETREXED [Suspect]
     Indication: HYPOPHARYNGEAL CANCER
     Dosage: 892 MG, UNKNOWN
     Route: 065
     Dates: start: 20070814
  2. CISPLATIN [Suspect]
     Indication: HYPOPHARYNGEAL CANCER
     Dosage: 134 MG, UNKNOWN
     Route: 065
     Dates: start: 20070814
  3. FOLIC ACID [Concomitant]
     Indication: PROPHYLAXIS
     Dosage: UNK, UNKNOWN
     Route: 065
     Dates: start: 20070806
  4. VITAMIN B-12 [Concomitant]
     Indication: PROPHYLAXIS
     Dosage: UNK, UNKNOWN
     Route: 065
     Dates: start: 20070806, end: 20070806
  5. DEXAMETHASONE 0.5MG TAB [Concomitant]
     Indication: PROPHYLAXIS
     Dosage: UNK, UNKNOWN
     Route: 065
     Dates: start: 20070813, end: 20070815
  6. FRESUBIN [Concomitant]
     Indication: MEDICAL DIET
     Dosage: UNK, UNKNOWN
     Route: 065
     Dates: start: 20070817, end: 20070826

REACTIONS (4)
  - INFECTION [None]
  - NAUSEA [None]
  - ORTHOSTATIC HYPOTENSION [None]
  - VOMITING [None]
